FAERS Safety Report 8813973 (Version 2)
Quarter: 2012Q4

REPORT INFORMATION
  Report Type: 
  Country: JP (occurrence: JP)
  Receive Date: 20120928
  Receipt Date: 20121025
  Transmission Date: 20130627
  Serious: Yes (Death, Hospitalization)
  Sender: FDA-Public Use
  Company Number: JP-ELI_LILLY_AND_COMPANY-JP201209006804

PATIENT
  Age: 57 Year
  Sex: Female
  Weight: 39 kg

DRUGS (8)
  1. GEMZAR [Suspect]
     Indication: BREAST CANCER RECURRENT
     Dosage: 1600 mg, UNK
     Route: 042
     Dates: start: 20110428, end: 20110505
  2. GEMZAR [Suspect]
     Dosage: 1600 mg, UNK
     Route: 042
     Dates: start: 20110519, end: 20110526
  3. PIMOBENDAN [Concomitant]
     Dosage: 5 mg, UNK
     Route: 048
     Dates: start: 20110204
  4. ALDACTONE                          /00006201/ [Concomitant]
     Dosage: 25 mg, UNK
     Route: 048
     Dates: start: 20110204
  5. LASIX                              /00032601/ [Concomitant]
     Dosage: 20 mg, UNK
     Route: 048
     Dates: start: 20110204
  6. MAGMITT [Concomitant]
     Indication: PROPHYLAXIS
     Dosage: UNK
     Route: 048
     Dates: start: 20110526
  7. DECADRON                           /00016002/ [Concomitant]
     Indication: PROPHYLAXIS
     Dosage: 6.6 mg, UNK
     Route: 042
     Dates: start: 20110428, end: 20110526
  8. ALOXI [Concomitant]
     Indication: PROPHYLAXIS
     Dosage: 0.75 mg, UNK
     Route: 042
     Dates: start: 20110428, end: 20110526

REACTIONS (2)
  - Neoplasm progression [Fatal]
  - Lung disorder [Recovered/Resolved]
